FAERS Safety Report 8384459-3 (Version None)
Quarter: 2012Q2

REPORT INFORMATION
  Report Type: 
  Country: None (occurrence: None)
  Receive Date: 20120524
  Receipt Date: 20120516
  Transmission Date: 20120825
  Serious: Yes (Other)
  Sender: FDA-Public Use
  Company Number: JP-GLAXOSMITHKLINE-B0802606A

PATIENT
  Sex: Female

DRUGS (6)
  1. ACETAMINOPHEN [Concomitant]
     Route: 048
  2. CLARITHROMYCIN [Concomitant]
     Dosage: 400MG PER DAY
     Route: 048
  3. RELENZA [Suspect]
     Indication: INFLUENZA
     Dosage: 4IUAX PER DAY
     Route: 055
     Dates: start: 20120514
  4. MUCOSOLVAN [Concomitant]
     Dosage: 45MG PER DAY
     Route: 048
  5. UNKNOWN DRUG [Concomitant]
     Route: 060
  6. ISODINE GARGLE [Concomitant]
     Route: 002

REACTIONS (2)
  - DELIRIUM [None]
  - ABNORMAL BEHAVIOUR [None]
